FAERS Safety Report 4981375-1 (Version None)
Quarter: 2006Q2

REPORT INFORMATION
  Report Type: 
  Country: None (occurrence: None)
  Receive Date: 20060419
  Receipt Date: 20060406
  Transmission Date: 20061013
  Serious: Yes (Hospitalization, Other)
  Sender: FDA-Public Use
  Company Number: 2006050615

PATIENT
  Age: 62 Year
  Sex: Male
  Weight: 99.7913 kg

DRUGS (4)
  1. BENADRYL [Suspect]
     Indication: MULTIPLE ALLERGIES
     Dosage: UNSPECIFIED, TWICE DAILY, EVERY 12H, PRN, ORAL
     Route: 048
  2. LIPITOR [Suspect]
     Dosage: 80 MG TABLETS QD, ORAL
     Route: 048
     Dates: start: 20050701
  3. ACETAMINOPHEN [Concomitant]
  4. METOPROLOL SUCCINATE [Concomitant]

REACTIONS (5)
  - ASTHENIA [None]
  - ATRIAL FIBRILLATION [None]
  - BLOOD CHOLESTEROL INCREASED [None]
  - MYOCARDIAL INFARCTION [None]
  - SOMNOLENCE [None]
